FAERS Safety Report 9458851 (Version 5)
Quarter: 2018Q4

REPORT INFORMATION
  Report Type: Spontaneous
  Country: US (occurrence: US)
  Receive Date: 20130814
  Receipt Date: 20181130
  Transmission Date: 20190205
  Serious: Yes (Death, Hospitalization, Other)
  Sender: FDA-Public Use
  Company Number: US-009507513-1308USA003222

PATIENT
  Sex: Female
  Weight: 58.5 kg

DRUGS (5)
  1. VITAMINS (UNSPECIFIED) [Concomitant]
     Active Substance: VITAMINS
     Indication: PRODUCT USED FOR UNKNOWN INDICATION
     Dosage: ONCE A DAY
     Route: 048
     Dates: end: 2011
  2. FOSAMAX [Suspect]
     Active Substance: ALENDRONATE SODIUM
     Indication: OSTEOPENIA
     Dosage: 70 MILLIGRAM, QW
     Route: 048
     Dates: start: 200201, end: 200802
  3. CALCIUM (UNSPECIFIED) [Concomitant]
     Active Substance: CALCIUM
     Indication: PRODUCT USED FOR UNKNOWN INDICATION
     Dosage: 600 MG TWICE DAILY
     Route: 048
     Dates: end: 2011
  4. ALENDRONATE SODIUM. [Suspect]
     Active Substance: ALENDRONATE SODIUM
     Indication: OSTEOPOROSIS
     Dosage: 70 MILLIGRAM, UNK
     Route: 048
     Dates: start: 200802, end: 20110203
  5. FOSAMAX [Suspect]
     Active Substance: ALENDRONATE SODIUM
     Indication: OSTEOPENIA
     Dosage: 10 MG
     Route: 048
     Dates: start: 199510, end: 200201

REACTIONS (33)
  - Osteoarthritis [Unknown]
  - Cerebellar haemorrhage [Recovering/Resolving]
  - Atrial fibrillation [Unknown]
  - Mitral valve incompetence [Unknown]
  - Coronary artery disease [Unknown]
  - Femur fracture [Unknown]
  - Wound drainage [Recovering/Resolving]
  - Death [Fatal]
  - Atrial fibrillation [Not Recovered/Not Resolved]
  - Fall [Unknown]
  - Hyperlipidaemia [Unknown]
  - Aneurysm [Unknown]
  - Femur fracture [Unknown]
  - Aortic stenosis [Unknown]
  - Femur fracture [Recovered/Resolved]
  - Femur fracture [Unknown]
  - Haemoglobin decreased [Unknown]
  - Fall [Unknown]
  - Femur fracture [Unknown]
  - Compression fracture [Unknown]
  - Cerebral infarction [Recovering/Resolving]
  - Cerebral small vessel ischaemic disease [Unknown]
  - Anaemia [Unknown]
  - Limb injury [Unknown]
  - Pain in extremity [Unknown]
  - Mitral valve prolapse [Unknown]
  - Hypertension [Unknown]
  - Urinary tract infection [Unknown]
  - Blood albumin decreased [Unknown]
  - Atrial flutter [Not Recovered/Not Resolved]
  - Cardiomegaly [Unknown]
  - Blood potassium increased [Unknown]
  - Gait disturbance [Unknown]

NARRATIVE: CASE EVENT DATE: 19970818
